FAERS Safety Report 8126243-1 (Version None)
Quarter: 2012Q1

REPORT INFORMATION
  Report Type: 
  Country: None (occurrence: None)
  Receive Date: 20120209
  Receipt Date: 20120201
  Transmission Date: 20120608
  Serious: Yes (Hospitalization)
  Sender: FDA-Public Use
  Company Number: US-NOVOPROD-344076

PATIENT
  Age: 65 Year
  Sex: Male
  Weight: 65.306 kg

DRUGS (15)
  1. NOVOLOG [Suspect]
     Indication: TYPE 2 DIABETES MELLITUS
     Dosage: 5 U, BEFORE MEALS
     Route: 058
     Dates: start: 20111110
  2. PLAVIX [Concomitant]
     Indication: CORONARY ARTERY DISEASE
  3. ASPIRIN [Concomitant]
     Indication: STENT PLACEMENT
     Dosage: 325 MG, QD
     Route: 065
     Dates: start: 20111101
  4. NOVOLIN N [Suspect]
     Dosage: 10 U, BID
     Route: 058
     Dates: start: 20120129, end: 20120101
  5. LIPITOR [Concomitant]
     Indication: PERIPHERAL ARTERIAL OCCLUSIVE DISEASE
  6. PLAVIX [Concomitant]
     Indication: PERIPHERAL ARTERIAL OCCLUSIVE DISEASE
  7. ASPIRIN [Concomitant]
     Indication: CORONARY ARTERY DISEASE
  8. METOCLOPRAMIDE [Concomitant]
     Indication: HYPERTENSION
     Dosage: 25 MG, BID
     Route: 065
     Dates: start: 20111101
  9. NOVOLIN N [Suspect]
     Indication: TYPE 2 DIABETES MELLITUS
     Dosage: 27 U, QD IN THE MORNING
     Route: 058
     Dates: start: 20111110, end: 20120129
  10. LIPITOR [Concomitant]
     Indication: CORONARY ARTERY DISEASE
  11. METOCLOPRAMIDE [Concomitant]
     Indication: PROPHYLAXIS
  12. PLAVIX [Concomitant]
     Indication: STENT PLACEMENT
     Dosage: 75 MG, QD
     Route: 065
     Dates: start: 20111101
  13. ASPIRIN [Concomitant]
     Indication: PERIPHERAL ARTERIAL OCCLUSIVE DISEASE
  14. NOVOLIN N [Suspect]
     Dosage: 25 U, QD IN THE EVENING
     Route: 058
     Dates: start: 20111110, end: 20120129
  15. LIPITOR [Concomitant]
     Indication: BLOOD CHOLESTEROL
     Dosage: 10 MG, QD
     Route: 065
     Dates: start: 20111101

REACTIONS (2)
  - HYPOGLYCAEMIA [None]
  - SYNCOPE [None]
